FAERS Safety Report 13365963 (Version 1)
Quarter: 2017Q1

REPORT INFORMATION
  Report Type: Spontaneous
  Country: US (occurrence: US)
  Receive Date: 20170323
  Receipt Date: 20170323
  Transmission Date: 20170429
  Serious: No
  Sender: FDA-Public Use
  Company Number: US-ALLERGAN-1700805US

PATIENT
  Sex: Female
  Weight: 57.14 kg

DRUGS (2)
  1. VIBERZI [Suspect]
     Active Substance: ELUXADOLINE
     Indication: IRRITABLE BOWEL SYNDROME
     Dosage: 100 MG, BID
     Route: 048
     Dates: start: 201603, end: 201608
  2. VIBERZI [Suspect]
     Active Substance: ELUXADOLINE
     Dosage: 100 MG, BID
     Route: 048
     Dates: start: 201609

REACTIONS (3)
  - Drug dose omission [Unknown]
  - Weight decreased [Unknown]
  - Diarrhoea [Unknown]

NARRATIVE: CASE EVENT DATE: 2016
